FAERS Safety Report 21191274 (Version 1)
Quarter: 2022Q3

REPORT INFORMATION
  Report Type: Spontaneous
  Country: GB (occurrence: GB)
  Receive Date: 20220809
  Receipt Date: 20220809
  Transmission Date: 20221027
  Serious: Yes (Other)
  Sender: FDA-Public Use
  Company Number: GB-TEVA-2022-GB-2063580

PATIENT

DRUGS (1)
  1. CLOMIPRAMINE [Suspect]
     Active Substance: CLOMIPRAMINE
     Indication: Product used for unknown indication
     Dosage: FORM STRENGTH AND UNIT DOSE: 10 MILLIGRAM
     Route: 065
     Dates: start: 1992

REACTIONS (1)
  - Hallucination, auditory [Unknown]

NARRATIVE: CASE EVENT DATE: 20220701
